FAERS Safety Report 5722541-7 (Version None)
Quarter: 2008Q2

REPORT INFORMATION
  Report Type: 
  Country: None (occurrence: None)
  Receive Date: 20080429
  Receipt Date: 20070917
  Transmission Date: 20081010
  Serious: No
  Sender: FDA-Public Use
  Company Number: US-ASTRAZENECA-2007UW19351

PATIENT
  Age: 79 Year
  Sex: Female
  Weight: 72.6 kg

DRUGS (7)
  1. NEXIUM [Suspect]
     Indication: GASTROOESOPHAGEAL REFLUX DISEASE
     Route: 048
     Dates: start: 20070601
  2. ASPIRIN [Concomitant]
  3. PHENERGAN [Concomitant]
  4. XANAX [Concomitant]
  5. LEVOTHYROXINE SODIUM [Concomitant]
  6. CYMBALTA [Concomitant]
  7. LUNESTA [Concomitant]

REACTIONS (3)
  - BURNING SENSATION [None]
  - GINGIVAL PAIN [None]
  - GLOSSODYNIA [None]
